FAERS Safety Report 4510139-8 (Version None)
Quarter: 2004Q4

REPORT INFORMATION
  Report Type: 
  Country: None (occurrence: None)
  Receive Date: 20041119
  Receipt Date: 20041112
  Transmission Date: 20050328
  Serious: Yes (Death, Hospitalization)
  Sender: FDA-Public Use
  Company Number: USA-2004-0016846

PATIENT
  Age: 46 Year
  Sex: Male

DRUGS (11)
  1. OXY CR TAB (OXYCODONE HYDROCHLORIDE) CR TABLET [Suspect]
     Indication: PAIN
     Dosage: 40 MG, BID, ORAL
     Route: 048
  2. OXYCODONE HCL [Suspect]
     Indication: PAIN
     Dosage: 5 MG, PRN, ORAL
     Route: 048
  3. OXYCONTIN [Concomitant]
  4. ENDONE [Concomitant]
  5. METOPROLOL TARTRATE [Concomitant]
  6. OMEPRAZOLE [Concomitant]
  7. FLUOXETINE [Concomitant]
  8. SALBUTAMOL (SALBUTAMOL) [Concomitant]
  9. FLUTICASONE PROPIONATE [Concomitant]
  10. SALMETEROL (SALMETEROL) [Concomitant]
  11. VITAMIN B12 [Concomitant]

REACTIONS (12)
  - ASPIRATION [None]
  - BLOOD PRESSURE DECREASED [None]
  - CARDIAC ARREST [None]
  - FALL [None]
  - HYPOXIA [None]
  - INCOHERENT [None]
  - MULTI-ORGAN FAILURE [None]
  - MYOCLONUS [None]
  - OVERDOSE [None]
  - RESPIRATORY ARREST [None]
  - RESUSCITATION [None]
  - SOMNOLENCE [None]
